FAERS Safety Report 23333751 (Version 1)
Quarter: 2023Q4

REPORT INFORMATION
  Report Type: Report from Study
  Country: CO (occurrence: CO)
  Receive Date: 20231223
  Receipt Date: 20231223
  Transmission Date: 20240110
  Serious: Yes (Hospitalization)
  Sender: FDA-Public Use
  Company Number: CO-ABBVIE-5525797

PATIENT
  Sex: Female
  Weight: 69 kg

DRUGS (2)
  1. VENCLEXTA [Suspect]
     Active Substance: VENETOCLAX
     Indication: Acute myeloid leukaemia
     Dosage: FORM STRENGTH:100 MILLIGRAM
     Route: 048
     Dates: start: 20230531, end: 20231121
  2. AZACITIDINE [Suspect]
     Active Substance: AZACITIDINE
     Indication: Acute myeloid leukaemia
     Route: 065

REACTIONS (10)
  - Liver abscess [Recovering/Resolving]
  - Red blood cell count decreased [Recovering/Resolving]
  - Immunodeficiency [Recovering/Resolving]
  - Toxicity to various agents [Recovering/Resolving]
  - Fatigue [Unknown]
  - Red blood cell count decreased [Recovering/Resolving]
  - Platelet count decreased [Recovering/Resolving]
  - Immunodeficiency [Recovering/Resolving]
  - Platelet count decreased [Recovering/Resolving]
  - Bone marrow disorder [Unknown]

NARRATIVE: CASE EVENT DATE: 20230101
